FAERS Safety Report 4482813-3 (Version None)
Quarter: 2004Q3

REPORT INFORMATION
  Report Type: 
  Country: None (occurrence: None)
  Receive Date: 20040921
  Receipt Date: 20040521
  Transmission Date: 20050211
  Serious: Yes (Other)
  Sender: FDA-Public Use
  Company Number: 163-20785-04050558

PATIENT
  Age: 53 Year
  Sex: Male
  Weight: 33.1126 kg

DRUGS (6)
  1. THALOMID [Suspect]
     Indication: METASTASES TO LUNG
     Dosage: 200-1000MG, QD X 21 DAY CYCLE, ORAL
     Route: 048
     Dates: start: 20040123, end: 20040402
  2. CARBOPLATIN [Suspect]
     Indication: METASTASES TO LUNG
     Dosage: 255 MG, DAY 1 OF A 21 DAY CYCLE, INTRAVENOUS
     Route: 042
     Dates: start: 20040123, end: 20040329
  3. PACLITAXEL [Suspect]
     Indication: METASTASES TO LUNG
     Dosage: 225 MG/M2, DAY 1 OF A 21 DAY CYCLE, INTRAVENOUS
     Route: 042
     Dates: start: 20040123, end: 20040329
  4. RADIATION [Suspect]
     Indication: METASTASES TO LUNG
     Dosage: 60 GY OVER 6 WEEKS, DAILY
     Dates: start: 20040123, end: 20040402
  5. ASPIRIN [Concomitant]
  6. CARAFATE [Concomitant]

REACTIONS (2)
  - CONVULSION [None]
  - DIZZINESS [None]
